FAERS Safety Report 8929016 (Version 1)
Quarter: 2012Q4

REPORT INFORMATION
  Report Type: 
  Country: ML (occurrence: ML)
  Receive Date: 20121128
  Receipt Date: 20121128
  Transmission Date: 20130627
  Serious: Yes (Death, Hospitalization)
  Sender: FDA-Public Use
  Company Number: PHHY2012ML108579

PATIENT
  Age: 46 Year
  Sex: Male
  Weight: 70 kg

DRUGS (1)
  1. IMATINIB [Suspect]
     Dosage: 400 mg, UNK
     Route: 048
     Dates: start: 20091207, end: 20121121

REACTIONS (5)
  - Acquired immunodeficiency syndrome [Fatal]
  - General physical health deterioration [Unknown]
  - Decreased appetite [Unknown]
  - Oral candidiasis [Unknown]
  - Dehydration [Unknown]
